FAERS Safety Report 4738756-0 (Version None)
Quarter: 2005Q3

REPORT INFORMATION
  Report Type: 
  Country: None (occurrence: None)
  Receive Date: 20050804
  Receipt Date: 20050722
  Transmission Date: 20060218
  Serious: Yes (Other)
  Sender: FDA-Public Use
  Company Number: 2005069912

PATIENT
  Age: 44 Year
  Sex: Female

DRUGS (4)
  1. DEPO-PROVERA [Suspect]
     Indication: CONTRACEPTION
     Dosage: SEE IMAGE
     Route: 030
     Dates: start: 20050318, end: 20050318
  2. DEPO-PROVERA [Suspect]
     Indication: CONTRACEPTION
     Dosage: SEE IMAGE
     Route: 030
     Dates: start: 20050615, end: 20050615
  3. DIPYRONE TAB [Concomitant]
  4. PLANTABEN (ISPAGHULA HUSK) [Concomitant]

REACTIONS (4)
  - ANAEMIA [None]
  - DYSMENORRHOEA [None]
  - HAEMORRHOID OPERATION [None]
  - VAGINAL HAEMORRHAGE [None]
